FAERS Safety Report 6330467-3 (Version None)
Quarter: 2009Q3

REPORT INFORMATION
  Report Type: 
  Country: None (occurrence: None)
  Receive Date: 20090826
  Receipt Date: 20090826
  Transmission Date: 20100115
  Serious: Yes (Other)
  Sender: FDA-Public Use
  Company Number: None

PATIENT
  Age: 65 Year
  Sex: Female
  Weight: 59.8748 kg

DRUGS (1)
  1. LISINOPRIL [Suspect]
     Indication: HYPERTENSION
     Dosage: 5 MG REDUCED TO 25 MG DAILY ORAL
     Route: 048
     Dates: start: 20090626, end: 20090817

REACTIONS (9)
  - CHOKING [None]
  - COUGH [None]
  - DRY THROAT [None]
  - DYSPHONIA [None]
  - LACRIMATION INCREASED [None]
  - RHINORRHOEA [None]
  - SNEEZING [None]
  - SPEECH DISORDER [None]
  - THROAT IRRITATION [None]
